FAERS Safety Report 5538326-0 (Version None)
Quarter: 2007Q4

REPORT INFORMATION
  Report Type: 
  Country: None (occurrence: None)
  Receive Date: 20071205
  Receipt Date: 20071119
  Transmission Date: 20080405
  Serious: Yes (Other)
  Sender: FDA-Public Use
  Company Number: 2007VX001977

PATIENT
  Age: 50 Year
  Sex: Male
  Weight: 82.5547 kg

DRUGS (8)
  1. INTERFERON ALFACON-1 [Suspect]
     Indication: HEPATITIS C
     Dosage: 15 UG; QD; SC
     Route: 058
     Dates: start: 20070301, end: 20071010
  2. INTERFERON ALFACON-1 [Suspect]
     Indication: HEPATITIS C
     Dosage: 15 UG; QD; SC
     Route: 058
     Dates: start: 20071102
  3. RIBAVIRIN [Suspect]
     Indication: HEPATITIS C
     Dosage: 60 MG; BID; PO
     Route: 048
     Dates: start: 20070301, end: 20071010
  4. LANTUS [Concomitant]
  5. FERROUS SULFATE TAB [Concomitant]
  6. PROCRIT [Concomitant]
  7. LISINOPRIL [Concomitant]
  8. OXYCODONE HCL [Concomitant]

REACTIONS (7)
  - DRUG INEFFECTIVE [None]
  - GALLBLADDER OPERATION [None]
  - HAEMOGLOBIN DECREASED [None]
  - NAUSEA [None]
  - PLATELET COUNT DECREASED [None]
  - VIRAL LOAD INCREASED [None]
  - WEIGHT DECREASED [None]
